FAERS Safety Report 7001041-0 (Version None)
Quarter: 2010Q3

REPORT INFORMATION
  Report Type: 
  Country: None (occurrence: None)
  Receive Date: 20100920
  Receipt Date: 20070925
  Transmission Date: 20110219
  Serious: Yes (Other)
  Sender: FDA-Public Use
  Company Number: US-ASTRAZENECA-2007UW22699

PATIENT
  Age: 482 Month
  Sex: Female
  Weight: 158.8 kg

DRUGS (19)
  1. SEROQUEL [Suspect]
     Indication: BIPOLAR DISORDER
     Route: 048
     Dates: start: 19970201
  2. SEROQUEL [Suspect]
     Indication: SCHIZOAFFECTIVE DISORDER
     Route: 048
     Dates: start: 19970201
  3. SEROQUEL [Suspect]
     Indication: HALLUCINATION
     Route: 048
     Dates: start: 19970201
  4. SEROQUEL [Suspect]
     Dosage: 100 MG IN MORNING, THREE AT NIGHT
     Route: 048
     Dates: start: 19980722
  5. SEROQUEL [Suspect]
     Dosage: 100 MG IN MORNING, THREE AT NIGHT
     Route: 048
     Dates: start: 19980722
  6. SEROQUEL [Suspect]
     Dosage: 100 MG IN MORNING, THREE AT NIGHT
     Route: 048
     Dates: start: 19980722
  7. RISPERDAL [Concomitant]
     Dates: start: 19930801
  8. ZYPREXA [Concomitant]
     Indication: HALLUCINATION, AUDITORY
     Dates: start: 19970501, end: 20030601
  9. ZYPREXA [Concomitant]
     Dosage: 10 MG TWO AT NIGHT
     Dates: start: 19980101
  10. ABILIFY [Concomitant]
     Dates: start: 20040801
  11. TRILAFON [Concomitant]
  12. DEPAKOTE [Concomitant]
     Dosage: 500 MG ONE IN MORNING, TWO AT NIGHT
     Dates: start: 19980101
  13. BUSPAR [Concomitant]
     Dosage: 30 MG - 45 MG
     Dates: start: 19980101
  14. NORTRIPTYLINE HCL [Concomitant]
     Dosage: 50 MG THREE AT NIGHT
     Dates: start: 19980101
  15. GLUCOTROL [Concomitant]
     Dosage: 5 MG ONE, TWO TIMES A DAY
     Route: 048
     Dates: start: 20000201
  16. INSULIN NOV [Concomitant]
     Dosage: 70/30, 40/30, 45AM 35PM
     Dates: start: 20010901
  17. SYNTHROID [Concomitant]
     Route: 048
     Dates: start: 20010101
  18. ACTOS [Concomitant]
     Dates: start: 20040101
  19. WELLBUTRIN [Concomitant]
     Dates: start: 20050101

REACTIONS (3)
  - DIABETES MELLITUS [None]
  - TYPE 1 DIABETES MELLITUS [None]
  - TYPE 2 DIABETES MELLITUS [None]
